FAERS Safety Report 17468561 (Version 1)
Quarter: 2020Q1

REPORT INFORMATION
  Report Type: Spontaneous
  Country: FR (occurrence: FR)
  Receive Date: 20200227
  Receipt Date: 20200227
  Transmission Date: 20200409
  Serious: Yes (Other)
  Sender: FDA-Public Use
  Company Number: FR-ASTELLAS-2020US001906

PATIENT
  Age: 60 Year
  Sex: Female
  Weight: 55 kg

DRUGS (3)
  1. CORTANCYL [Concomitant]
     Active Substance: PREDNISONE
     Indication: AUTOIMMUNE HEPATITIS
     Dosage: 5 TO 30 MG, ONCE DAILY
     Route: 048
     Dates: start: 201809
  2. CYCLOSPORIN [Concomitant]
     Active Substance: CYCLOSPORINE
     Indication: AUTOIMMUNE HEPATITIS
     Dosage: 100 TO 220 MG, ONCE DAILY
     Route: 048
     Dates: start: 201811, end: 20191010
  3. PROGRAF [Suspect]
     Active Substance: TACROLIMUS
     Indication: AUTOIMMUNE HEPATITIS
     Dosage: 1 MG, TWICE DAILY (MG IN THE MORNING AND IN THE EVENING)
     Route: 048
     Dates: start: 20191025, end: 20191104

REACTIONS (4)
  - Depersonalisation/derealisation disorder [Recovering/Resolving]
  - Panic attack [Unknown]
  - Product use in unapproved indication [Unknown]
  - Anxiety [Unknown]

NARRATIVE: CASE EVENT DATE: 20191026
